FAERS Safety Report 8494746-6 (Version None)
Quarter: 2012Q3

REPORT INFORMATION
  Report Type: 
  Country: None (occurrence: None)
  Receive Date: 20120709
  Receipt Date: 20120628
  Transmission Date: 20120928
  Serious: Yes (Hospitalization)
  Sender: FDA-Public Use
  Company Number: MX-SANOFI-AVENTIS-2012SA046195

PATIENT
  Age: 60 Year
  Sex: Female

DRUGS (2)
  1. LANTUS [Suspect]
     Indication: TYPE 2 DIABETES MELLITUS
     Route: 058
     Dates: start: 20060101, end: 20120101
  2. FELODIPINE [Concomitant]
     Route: 048
     Dates: start: 20000101

REACTIONS (3)
  - CARDIAC DISORDER [None]
  - HYPERGLYCAEMIA [None]
  - LUNG DISORDER [None]
